FAERS Safety Report 9715870 (Version 1)
Quarter: 2013Q4

REPORT INFORMATION
  Report Type: Report from Study
  Country: US (occurrence: US)
  Receive Date: 20131127
  Receipt Date: 20131127
  Transmission Date: 20140711
  Serious: Yes (Other)
  Sender: FDA-Public Use
  Company Number: US-ROCHE-1306132

PATIENT
  Sex: Male
  Weight: 43.4 kg

DRUGS (5)
  1. NUTROPIN AQ [Suspect]
     Indication: GROWTH HORMONE DEFICIENCY
     Route: 058
     Dates: end: 20130627
  2. NUTROPIN AQ [Suspect]
     Route: 058
     Dates: start: 20130627, end: 20130912
  3. NUTROPIN AQ [Suspect]
     Route: 058
     Dates: start: 20130912
  4. CLARITIN [Concomitant]
     Dosage: PRN
     Route: 048
  5. NASONEX [Concomitant]
     Dosage: 50 MCG/ACTUATION. 1 SPRAY IN EACH NOSTIL
     Route: 045

REACTIONS (3)
  - Skin papilloma [Unknown]
  - Weight increased [Unknown]
  - Blister [Unknown]
